FAERS Safety Report 10652623 (Version 1)
Quarter: 2014Q4

REPORT INFORMATION
  Report Type: Spontaneous
  Country: IT (occurrence: IT)
  Receive Date: 20141215
  Receipt Date: 20141215
  Transmission Date: 20150529
  Serious: Yes (Hospitalization)
  Sender: FDA-Public Use
  Company Number: IT-ACTAVIS-2014-26488

PATIENT
  Age: 57 Year
  Sex: Female
  Weight: 68 kg

DRUGS (4)
  1. ONDASETRON                         /00955301/ [Concomitant]
     Indication: BREAST CANCER
     Dosage: 8 MG, UNKNOWN
     Route: 042
     Dates: start: 20141118, end: 20141118
  2. METOCLOPRAMIDE                     /00041902/ [Concomitant]
     Indication: BREAST CANCER
     Dosage: 10 MG, UNKNOWN
     Route: 042
     Dates: start: 20141118, end: 20141118
  3. DOCETAXEL (UNKNOWN) [Suspect]
     Active Substance: DOCETAXEL
     Indication: BREAST CANCER
     Dosage: 130 MG, CYCLICAL
     Route: 042
     Dates: start: 20141118, end: 20141118
  4. DEXAMETHASONE. [Concomitant]
     Active Substance: DEXAMETHASONE
     Indication: BREAST CANCER
     Dosage: 8 MG, UNKNOWN
     Route: 042
     Dates: start: 20141118, end: 20141118

REACTIONS (3)
  - Dyspnoea [Recovered/Resolved]
  - Spinal pain [Recovered/Resolved]
  - Erythema [Recovered/Resolved]

NARRATIVE: CASE EVENT DATE: 20141118
